FAERS Safety Report 22236162 (Version 2)
Quarter: 2023Q2

REPORT INFORMATION
  Report Type: Spontaneous
  Country: CA (occurrence: CA)
  Receive Date: 20230420
  Receipt Date: 20230511
  Transmission Date: 20230721
  Serious: Yes (Other)
  Sender: FDA-Public Use
  Company Number: CA-AMERICAN REGENT INC-2023000936

PATIENT
  Age: 43 Year
  Sex: Female

DRUGS (1)
  1. VENOFER [Suspect]
     Active Substance: IRON SUCROSE
     Indication: Serum ferritin decreased
     Dosage: 1 DOSAGE FORM/STARTED AT 100 ML/HR/DOSAGE TEXT: 100MG/5ML X 3
     Route: 042
     Dates: start: 20221211, end: 20221211

REACTIONS (8)
  - Cardiac flutter [Unknown]
  - Respiratory rate increased [Unknown]
  - Vision blurred [Unknown]
  - Fatigue [Unknown]
  - Abdominal pain [Unknown]
  - Chest discomfort [Unknown]
  - Chest pain [Unknown]
  - Hypertension [Unknown]

NARRATIVE: CASE EVENT DATE: 20221211
